FAERS Safety Report 7321140-3 (Version None)
Quarter: 2011Q1

REPORT INFORMATION
  Report Type: 
  Country: None (occurrence: None)
  Receive Date: 20110228
  Receipt Date: 20110221
  Transmission Date: 20110831
  Serious: Yes (Hospitalization, Other)
  Sender: FDA-Public Use
  Company Number: ES-SANOFI-AVENTIS-2011SA010918

PATIENT
  Age: 87 Year
  Sex: Male
  Weight: 60 kg

DRUGS (7)
  1. LORAZEPAM [Concomitant]
     Route: 065
  2. SEGURIL [Concomitant]
     Route: 065
  3. ALDACTONE [Concomitant]
     Route: 065
  4. CLEXANE SYRINGES [Suspect]
     Dosage: 120 MG/DIA
     Route: 058
     Dates: start: 20101016, end: 20101106
  5. CARDYL [Concomitant]
     Route: 065
  6. PRIMPERAN TAB [Concomitant]
     Route: 065
  7. ENALAPRIL [Concomitant]
     Route: 065

REACTIONS (4)
  - EPISTAXIS [None]
  - SCIATICA [None]
  - RETROPERITONEAL HAEMORRHAGE [None]
  - BLOOD CREATININE INCREASED [None]
